FAERS Safety Report 23491572 (Version 2)
Quarter: 2025Q1

REPORT INFORMATION
  Report Type: Spontaneous
  Country: US (occurrence: US)
  Receive Date: 20240207
  Receipt Date: 20250206
  Transmission Date: 20250409
  Serious: No
  Sender: ALMUS
  Company Number: US-ALMIRALL-US-2024-0237

PATIENT
  Sex: Male

DRUGS (1)
  1. KLISYRI [Suspect]
     Active Substance: TIRBANIBULIN
     Indication: Skin disorder prophylaxis
     Dates: start: 20240122, end: 20240126

REACTIONS (2)
  - Nasal pruritus [Recovered/Resolved]
  - Skin exfoliation [Recovered/Resolved]
